FAERS Safety Report 13963592 (Version 1)
Quarter: 2017Q3

REPORT INFORMATION
  Report Type: Spontaneous
  Country: US (occurrence: US)
  Receive Date: 20170913
  Receipt Date: 20170913
  Transmission Date: 20171128
  Serious: No
  Sender: FDA-Public Use
  Company Number: US-JNJFOC-20170213179

PATIENT
  Sex: Male

DRUGS (5)
  1. ENULOSE [Concomitant]
     Active Substance: LACTULOSE
     Route: 065
     Dates: start: 20120904
  2. XIFAXAN [Concomitant]
     Active Substance: RIFAXIMIN
     Route: 065
     Dates: start: 201211
  3. XIFAXAN [Concomitant]
     Active Substance: RIFAXIMIN
     Route: 065
     Dates: start: 2016
  4. ALEVE [Concomitant]
     Active Substance: NAPROXEN SODIUM
     Route: 065
  5. TRAMADOL. [Suspect]
     Active Substance: TRAMADOL
     Indication: FLANK PAIN
     Route: 065

REACTIONS (1)
  - Therapeutic response decreased [Unknown]
